FAERS Safety Report 7737212-5 (Version None)
Quarter: 2011Q3

REPORT INFORMATION
  Report Type: 
  Country: None (occurrence: None)
  Receive Date: 20110902
  Receipt Date: 20110822
  Transmission Date: 20111222
  Serious: Yes (Other)
  Sender: FDA-Public Use
  Company Number: 2011MA012385

PATIENT
  Age: 1 Month

DRUGS (1)
  1. TOPOTECAN [Suspect]
     Indication: INTRAOCULAR RETINOBLASTOMA
     Dosage: 3.75 MG/M2, IO
     Route: 031

REACTIONS (3)
  - NEUTROPHIL COUNT DECREASED [None]
  - OCULAR HYPERAEMIA [None]
  - WHITE BLOOD CELL COUNT DECREASED [None]
